FAERS Safety Report 15463247 (Version 1)
Quarter: 2018Q4

REPORT INFORMATION
  Report Type: Report from Study
  Country: None (occurrence: US)
  Receive Date: 20181004
  Receipt Date: 20181004
  Transmission Date: 20190204
  Serious: Yes (Other)
  Sender: FDA-Public Use
  Company Number: US-ABBVIE-18K-163-2504503-00

PATIENT
  Sex: Female

DRUGS (1)
  1. HUMIRA [Suspect]
     Active Substance: ADALIMUMAB
     Indication: CROHN^S DISEASE
     Route: 058

REACTIONS (8)
  - Post procedural constipation [Unknown]
  - Diarrhoea [Unknown]
  - Muscular weakness [Unknown]
  - Rectal tenesmus [Unknown]
  - Colostomy [Unknown]
  - Incisional hernia [Unknown]
  - Post procedural fistula [Unknown]
  - Gastrointestinal disorder [Unknown]
